FAERS Safety Report 5743956-7 (Version None)
Quarter: 2008Q2

REPORT INFORMATION
  Report Type: 
  Country: None (occurrence: None)
  Receive Date: 20080520
  Receipt Date: 20080520
  Transmission Date: 20081010
  Serious: Yes (Other)
  Sender: FDA-Public Use
  Company Number: None

PATIENT

DRUGS (8)
  1. HEPARIN [Suspect]
     Indication: PERCUTANEOUS CORONARY INTERVENTION
     Dosage: 10 ML FLUSH INTRA-ARTERIAL
     Route: 013
     Dates: start: 20080519, end: 20080519
  2. ASPIRIN [Concomitant]
  3. NEXIUM [Concomitant]
  4. TOPROL-XL [Concomitant]
  5. DALMANE [Concomitant]
  6. TRICOR [Concomitant]
  7. DYAZIDE [Concomitant]
  8. KLONOPIN [Concomitant]

REACTIONS (1)
  - ARTERIAL THROMBOSIS [None]
